FAERS Safety Report 4868114-X (Version None)
Quarter: 2005Q4

REPORT INFORMATION
  Report Type: 
  Country: None (occurrence: None)
  Receive Date: 20051229
  Receipt Date: 20051220
  Transmission Date: 20060501
  Serious: Yes (Other)
  Sender: FDA-Public Use
  Company Number: PHEH2005US13657

PATIENT
  Age: 45 Year
  Sex: Female

DRUGS (4)
  1. BYETTA [Suspect]
     Indication: DIABETES MELLITUS NON-INSULIN-DEPENDENT
     Dosage: 5 MCG, UNKNOWN, SC
     Route: 058
     Dates: start: 20050903
  2. SULFASALAZINE [Concomitant]
  3. COMPAZINE [Concomitant]
     Dates: start: 20040101
  4. ZELNORM [Suspect]
     Indication: CROHN'S DISEASE
     Dosage: UNK, UNK
     Dates: start: 20050905, end: 20050901

REACTIONS (5)
  - DIARRHOEA [None]
  - DIARRHOEA HAEMORRHAGIC [None]
  - NAUSEA [None]
  - TREMOR [None]
  - VOMITING [None]
